FAERS Safety Report 7563170-2 (Version None)
Quarter: 2011Q2

REPORT INFORMATION
  Report Type: 
  Country: None (occurrence: None)
  Receive Date: 20110622
  Receipt Date: 20110613
  Transmission Date: 20111010
  Serious: Yes (Hospitalization, Other)
  Sender: FDA-Public Use
  Company Number: JP-B.I. PHARMACEUTICALS,INC./RIDGEFIELD-2011-BP-13709NB

PATIENT
  Sex: Male
  Weight: 56.5 kg

DRUGS (10)
  1. DIART [Concomitant]
     Indication: CARDIAC FAILURE CONGESTIVE
     Dosage: 30 MG
     Route: 048
     Dates: start: 20100401
  2. ASPIRIN [Concomitant]
     Indication: MYOCARDIAL INFARCTION
     Dosage: 100 MG
     Route: 048
     Dates: start: 20090501
  3. LENIMEC [Concomitant]
     Indication: MYOCARDIAL INFARCTION
     Dosage: 5 MG
     Route: 048
     Dates: start: 20100301, end: 20110520
  4. UBIRON [Concomitant]
     Indication: LIVER DISORDER
     Dosage: 600 MG
     Route: 048
  5. AMIODARONE HCL [Suspect]
     Indication: VENTRICULAR EXTRASYSTOLES
     Dosage: 400 MG
     Route: 048
     Dates: start: 20110414, end: 20110519
  6. MILLIS [Concomitant]
     Indication: HYPERURICAEMIA
     Dosage: 10 MG
     Route: 062
     Dates: start: 20100401
  7. PRADAXA [Suspect]
     Indication: ATRIAL FIBRILLATION
     Dosage: 300 MG
     Route: 048
     Dates: start: 20110402, end: 20110518
  8. TREBIANOM [Concomitant]
     Indication: HYPERURICAEMIA
     Dosage: 25 MG
     Route: 048
     Dates: start: 20100910
  9. ATENOTE [Concomitant]
     Indication: CARDIAC FAILURE CONGESTIVE
     Dosage: 10 MG
     Route: 048
     Dates: start: 20110118, end: 20110520
  10. SPIRONOLACTONE [Concomitant]
     Indication: CARDIAC FAILURE CONGESTIVE
     Dosage: 12.5 MG
     Route: 048
     Dates: start: 20100401, end: 20110519

REACTIONS (5)
  - SINUS ARREST [None]
  - LOSS OF CONSCIOUSNESS [None]
  - BRADYCARDIA [None]
  - OLIGURIA [None]
  - RENAL IMPAIRMENT [None]
